FAERS Safety Report 24268677 (Version 1)
Quarter: 2024Q3

REPORT INFORMATION
  Report Type: Spontaneous
  Country: US (occurrence: US)
  Receive Date: 20240830
  Receipt Date: 20240830
  Transmission Date: 20241017
  Serious: Yes (Other)
  Sender: Apozeal Pharmaceuticals
  Company Number: US-Apozeal Pharmaceuticals-2161040

PATIENT

DRUGS (1)
  1. RISPERIDONE [Suspect]
     Active Substance: RISPERIDONE
     Indication: Product used for unknown indication
     Route: 065

REACTIONS (10)
  - Starvation [Unknown]
  - Feeling abnormal [Unknown]
  - Depression [Unknown]
  - Hunger [Unknown]
  - Dizziness [Unknown]
  - Weight loss poor [Unknown]
  - Gastritis [Unknown]
  - Withdrawal syndrome [Unknown]
  - Condition aggravated [Unknown]
  - Postural orthostatic tachycardia syndrome [Unknown]
